FAERS Safety Report 11774163 (Version 5)
Quarter: 2016Q1

REPORT INFORMATION
  Report Type: Spontaneous
  Country: JP (occurrence: JP)
  Receive Date: 20151124
  Receipt Date: 20160308
  Transmission Date: 20160525
  Serious: Yes (Death, Hospitalization, Disabling, Other)
  Sender: FDA-Public Use
  Company Number: JP-PFIZER INC-2015297233

PATIENT
  Age: 79 Year
  Sex: Male

DRUGS (1)
  1. TORISEL [Suspect]
     Active Substance: TEMSIROLIMUS
     Indication: METASTATIC RENAL CELL CARCINOMA
     Dosage: 25 MG, WEEKLY
     Route: 041
     Dates: start: 20150826, end: 20151008

REACTIONS (20)
  - Disease progression [Fatal]
  - Weight increased [Recovered/Resolved]
  - Weight decreased [Not Recovered/Not Resolved]
  - Cough [Not Recovered/Not Resolved]
  - Performance status decreased [Unknown]
  - Pleural effusion [Recovered/Resolved]
  - Hypoproteinaemia [Not Recovered/Not Resolved]
  - Renal impairment [Recovering/Resolving]
  - Cardiac failure [Fatal]
  - Condition aggravated [Recovering/Resolving]
  - Pyrexia [Recovered/Resolved]
  - Metastatic renal cell carcinoma [Fatal]
  - Perirectal abscess [Unknown]
  - Blood creatinine increased [Recovering/Resolving]
  - Platelet count decreased [Recovered/Resolved]
  - Oedema peripheral [Recovered/Resolved]
  - Malaise [Unknown]
  - Generalised oedema [Recovering/Resolving]
  - Decreased appetite [Unknown]
  - Nasopharyngitis [Recovered/Resolved]

NARRATIVE: CASE EVENT DATE: 2015
